FAERS Safety Report 11666341 (Version 3)
Quarter: 2015Q4

REPORT INFORMATION
  Report Type: Spontaneous
  Country: US (occurrence: US)
  Receive Date: 20151027
  Receipt Date: 20151116
  Transmission Date: 20160304
  Serious: Yes (Other)
  Sender: FDA-Public Use
  Company Number: US-PFIZER INC-2015308481

PATIENT
  Age: 56 Year
  Sex: Female
  Weight: 90 kg

DRUGS (8)
  1. METFORMIN [Concomitant]
     Active Substance: METFORMIN HYDROCHLORIDE
     Indication: TYPE 2 DIABETES MELLITUS
     Dosage: 1000 MG, 1X/DAY (ONE AT NIGHT)
  2. OXYCODONE/ACETAMINOPHEN [Concomitant]
     Active Substance: ACETAMINOPHEN\OXYCODONE HYDROCHLORIDE
     Indication: PAIN
     Dosage: (7.5-325 2 PILLS) 2X/DAY
  3. XANAX [Concomitant]
     Active Substance: ALPRAZOLAM
     Dosage: 0.5 MG, 3X/DAY
  4. NARDIL [Suspect]
     Active Substance: PHENELZINE SULFATE
     Indication: PANIC DISORDER
     Dosage: 15MG TABLETS, 3 TABLETS TWICE DAILY
     Route: 048
  5. NARDIL [Suspect]
     Active Substance: PHENELZINE SULFATE
     Indication: ANXIETY
  6. GRALISE ER [Concomitant]
     Indication: NEUROLOGICAL SYMPTOM
     Dosage: 600 MG 3 PILLS ONCE DAILY
  7. LOSARTAN POTASSIUM. [Concomitant]
     Active Substance: LOSARTAN POTASSIUM
     Indication: BLOOD PRESSURE ABNORMAL
     Dosage: 25 MG, 1X/DAY
  8. SIMVASTIN [Concomitant]
     Active Substance: SIMVASTATIN
     Indication: HYPERTRIGLYCERIDAEMIA
     Dosage: 40 MG, 1X/DAY

REACTIONS (2)
  - Weight increased [Unknown]
  - Type 2 diabetes mellitus [Not Recovered/Not Resolved]
